FAERS Safety Report 8964807 (Version 1)
Quarter: 2012Q4

REPORT INFORMATION
  Report Type: Report from Study
  Country: AU (occurrence: AU)
  Receive Date: 20121214
  Receipt Date: 20121214
  Transmission Date: 20130627
  Serious: Yes (Life-Threatening, Hospitalization)
  Sender: FDA-Public Use
  Company Number: AU-PFIZER INC-2012313453

PATIENT
  Age: 63 Year
  Sex: Female
  Weight: 61.9 kg

DRUGS (10)
  1. ADRIAMYCIN [Suspect]
     Indication: BREAST CANCER
     Dosage: 100 mg, every 3 weeks
     Route: 042
     Dates: start: 20090213
  2. CYCLOPHOSPHAMIDE [Suspect]
     Indication: BREAST CANCER
     Dosage: 1000 mg, every 3 weeks
     Route: 042
     Dates: start: 20090213
  3. BEVACIZUMAB [Suspect]
     Indication: BREAST CANCER
     Dosage: 960 mg, every 3 weeks
     Route: 042
     Dates: start: 20090213, end: 20090528
  4. OLMETEC [Concomitant]
     Dosage: UNK mg, UNK
     Dates: start: 2007
  5. LOVAN [Concomitant]
     Dosage: UNK mg, UNK
     Dates: start: 2007
  6. FRUSEMIDE [Concomitant]
     Indication: URINE OUTPUT DECREASED
     Dosage: UNK mg, UNK
     Dates: start: 20090615
  7. PERINDOPRIL [Concomitant]
     Dosage: UNK mg, UNK
     Dates: start: 20090621
  8. DIGOXIN [Concomitant]
     Dosage: UNK
     Dates: start: 20090704, end: 20090715
  9. SPIRONOLACTONE [Concomitant]
     Dosage: UNK
     Dates: start: 20090615, end: 20090715
  10. CARVEDILOL [Concomitant]
     Dosage: UNK
     Dates: start: 20090619, end: 20090716

REACTIONS (3)
  - Cardiac failure [Recovered/Resolved]
  - Neutropenia [Recovered/Resolved]
  - Syncope [Recovered/Resolved]
